FAERS Safety Report 4963532-3 (Version None)
Quarter: 2006Q1

REPORT INFORMATION
  Report Type: 
  Country: None (occurrence: None)
  Receive Date: 20060330
  Receipt Date: 20060314
  Transmission Date: 20060701
  Serious: Yes (Other)
  Sender: FDA-Public Use
  Company Number: TCI2006A00059

PATIENT
  Age: 63 Year
  Sex: Female

DRUGS (12)
  1. ACTOS [Suspect]
     Indication: DIABETES MELLITUS NON-INSULIN-DEPENDENT
     Dosage: 15 MG (15 MG, 1IN 1 D) PER ORAL
     Route: 048
     Dates: start: 20041112, end: 20060115
  2. GLUFAST (MITIGLINIDE CALCIUM HYDRATE) [Suspect]
     Indication: DIABETES MELLITUS NON-INSULIN-DEPENDENT
     Dosage: 30 MG (10 MG, 3 IN 1 D) PER ORAL
     Route: 048
     Dates: start: 20051117, end: 20051228
  3. DIOVAN [Concomitant]
  4. SIMVASTATIN [Concomitant]
  5. LOXONIN (LOXOPROFEN SODIUM) [Concomitant]
  6. MUCOSTA (REBAMIPIDE) [Concomitant]
  7. MYONAL (EPERISONE HYDROCHLORIDE) [Concomitant]
  8. VOLTAREN SUPPO (DICLOFENAC SODIUM) [Concomitant]
  9. MYSLEE (ZOLPIDEM TARTRAATE) [Concomitant]
  10. HYOSCINE HBR HYT [Concomitant]
  11. PERRISELTZ (FERRIC AMMONIUM CITRATE) [Concomitant]
  12. IOPAMIDOL [Concomitant]

REACTIONS (2)
  - METASTASES TO LIVER [None]
  - PANCREATIC CARCINOMA [None]
